FAERS Safety Report 12623979 (Version 1)
Quarter: 2016Q3

REPORT INFORMATION
  Report Type: Spontaneous
  Country: US (occurrence: US)
  Receive Date: 20160804
  Receipt Date: 20160804
  Transmission Date: 20161109
  Serious: No
  Sender: FDA-Public Use
  Company Number: US-LUNDBECK-DKLU2014483

PATIENT
  Age: 24 Year
  Sex: Female

DRUGS (2)
  1. NORTHERA [Suspect]
     Active Substance: DROXIDOPA
     Indication: PRODUCT USED FOR UNKNOWN INDICATION
     Route: 065
  2. NORTHERA [Suspect]
     Active Substance: DROXIDOPA
     Dosage: OVERDOSE: 600 MG
     Route: 065
     Dates: start: 20160521

REACTIONS (3)
  - Anxiety [Unknown]
  - Accidental overdose [Unknown]
  - Decreased activity [Unknown]

NARRATIVE: CASE EVENT DATE: 20160521
